FAERS Safety Report 10036026 (Version 3)
Quarter: 2014Q2

REPORT INFORMATION
  Report Type: Spontaneous
  Country: NO (occurrence: NO)
  Receive Date: 20140325
  Receipt Date: 20140502
  Transmission Date: 20141212
  Serious: Yes (Hospitalization, Other)
  Sender: FDA-Public Use
  Company Number: NO-SA-2014SA035153

PATIENT
  Age: 30 Year
  Sex: Male

DRUGS (6)
  1. LEMTRADA [Suspect]
     Indication: MULTIPLE SCLEROSIS
     Route: 042
     Dates: start: 20140317, end: 20140317
  2. LEMTRADA [Suspect]
     Indication: MULTIPLE SCLEROSIS
     Dosage: TOTAL 5 DOSES OVER 6 DAYS
     Route: 042
     Dates: start: 20140319
  3. ZOVIRAX [Suspect]
  4. SOLU-MEDROL [Concomitant]
     Indication: PROPHYLAXIS
     Route: 042
     Dates: start: 201403
  5. CETRIZIN [Concomitant]
     Indication: PROPHYLAXIS
     Route: 048
     Dates: start: 201403
  6. PARACETAMOL [Concomitant]

REACTIONS (3)
  - Generalised tonic-clonic seizure [Recovered/Resolved]
  - Epilepsy [Recovered/Resolved]
  - Drug interaction [Recovered/Resolved]
